FAERS Safety Report 4993381-1 (Version None)
Quarter: 2006Q2

REPORT INFORMATION
  Report Type: 
  Country: None (occurrence: None)
  Receive Date: 20060503
  Receipt Date: 20060503
  Transmission Date: 20061013
  Serious: Yes (Hospitalization)
  Sender: FDA-Public Use
  Company Number: None

PATIENT
  Age: 68 Year
  Sex: Male
  Weight: 79 kg

DRUGS (4)
  1. DOCETAXEL [Suspect]
     Indication: CHEMOTHERAPY
     Dosage: 60 MG M2 IV /1 HR EVERY 3 WK
     Route: 042
     Dates: start: 20060421
  2. GEFITINIB [Suspect]
     Indication: CHEMOTHERAPY
     Dosage: 250 MG ORAL DOES /DAY
     Route: 048
     Dates: start: 20060421
  3. LOTREL [Concomitant]
  4. ATENOLOL [Concomitant]

REACTIONS (5)
  - ANAEMIA [None]
  - ASCITES [None]
  - DIARRHOEA [None]
  - HYPOTENSION [None]
  - NEUTROPENIA [None]
